FAERS Safety Report 16031986 (Version 1)
Quarter: 2019Q1

REPORT INFORMATION
  Report Type: Spontaneous
  Country: US (occurrence: US)
  Receive Date: 20190304
  Receipt Date: 20190304
  Transmission Date: 20190418
  Serious: No
  Sender: FDA-Public Use
  Company Number: US-IMPAX LABORATORIES, LLC-2018-IPXL-00301

PATIENT
  Age: 74 Year
  Sex: Male
  Weight: 86 kg

DRUGS (17)
  1. RYTARY [Suspect]
     Active Substance: CARBIDOPA\LEVODOPA
     Dosage: 61.25/245 MG, 2 CAPSULE 7AM, 2 CAPSULES 11AM, 2 CAPSULES 3PM, 2 CAPSULES 7PM
     Route: 048
     Dates: start: 201801
  2. BACLOFEN. [Concomitant]
     Active Substance: BACLOFEN
     Indication: SPINAL COLUMN STENOSIS
  3. BACLOFEN. [Concomitant]
     Active Substance: BACLOFEN
     Indication: NEUROPATHY PERIPHERAL
     Dosage: 10 MG, UNK
     Route: 065
  4. COLACE [Concomitant]
     Active Substance: DOCUSATE SODIUM
     Indication: PROPHYLAXIS
     Dosage: UNK
     Route: 065
  5. CARBIDOPA. [Concomitant]
     Active Substance: CARBIDOPA
     Indication: PRODUCT USED FOR UNKNOWN INDICATION
     Dosage: 25MG, 2 DF, UNK
     Route: 065
  6. CLOPIDOGREL [Concomitant]
     Active Substance: CLOPIDOGREL BISULFATE
     Indication: CARDIOVASCULAR EVENT PROPHYLAXIS
     Dosage: 75 MG, UNK
     Route: 065
     Dates: start: 2017
  7. CLONAZEPAM. [Concomitant]
     Active Substance: CLONAZEPAM
     Indication: ANXIETY
     Dosage: 0.5 MG, UNK
     Route: 065
  8. LYRICA [Concomitant]
     Active Substance: PREGABALIN
     Indication: NEUROPATHY PERIPHERAL
     Dosage: 25 MG, UNK
     Route: 065
  9. MULTIPLE VITAMINS [Concomitant]
     Active Substance: VITAMINS
     Indication: VITAMIN SUPPLEMENTATION
     Dosage: UNK
     Route: 065
  10. ETODOLAC. [Concomitant]
     Active Substance: ETODOLAC
     Indication: SPINAL PAIN
     Dosage: UNK, PRN
     Route: 065
  11. RYTARY [Suspect]
     Active Substance: CARBIDOPA\LEVODOPA
     Indication: PARKINSON^S DISEASE
     Dosage: 61.25/245 MG, 3 CAPSULE 7AM, 2 CAPSULES 11AM, 3 CAPSULE 3PM, 2 CAPSULE 7PM
     Route: 048
     Dates: start: 201703
  12. METOPROLOL SUCCINATE. [Concomitant]
     Active Substance: METOPROLOL SUCCINATE
     Indication: CARDIOVASCULAR EVENT PROPHYLAXIS
     Dosage: 25 MG, UNK
     Route: 065
  13. FISH OIL [Concomitant]
     Active Substance: FISH OIL
     Indication: SUPPLEMENTATION THERAPY
     Dosage: UNK
     Route: 065
     Dates: start: 2016
  14. CARBIDOPA-LEVODOPA ER [Suspect]
     Active Substance: CARBIDOPA\LEVODOPA
     Indication: PARKINSON^S DISEASE
     Dosage: 25/145-150MG, UNK
     Route: 065
  15. ASPIRIN 81 [Concomitant]
     Active Substance: ASPIRIN
     Indication: CARDIOVASCULAR EVENT PROPHYLAXIS
     Dosage: 81 MG, UNK
     Route: 065
  16. BACLOFEN. [Concomitant]
     Active Substance: BACLOFEN
     Indication: SCOLIOSIS
  17. CITALOPRAM [Concomitant]
     Active Substance: CITALOPRAM HYDROBROMIDE
     Indication: DEPRESSION
     Dosage: 40 MG, UNK
     Route: 065

REACTIONS (3)
  - Hallucination, visual [Not Recovered/Not Resolved]
  - Therapeutic response shortened [Unknown]
  - Muscle disorder [Unknown]

NARRATIVE: CASE EVENT DATE: 201701
